FAERS Safety Report 23065992 (Version 1)
Quarter: 2023Q4

REPORT INFORMATION
  Report Type: Spontaneous
  Country: PL (occurrence: PL)
  Receive Date: 20231014
  Receipt Date: 20231014
  Transmission Date: 20240109
  Serious: Yes (Other)
  Sender: FDA-Public Use
  Company Number: PL-Accord-382912

PATIENT
  Age: 48 Year
  Sex: Male

DRUGS (6)
  1. EPTIFIBATIDE [Suspect]
     Active Substance: EPTIFIBATIDE
     Indication: Acute myocardial infarction
     Dosage: BOLUS
     Route: 022
  2. ADENOSINE [Suspect]
     Active Substance: ADENOSINE
     Indication: Acute myocardial infarction
     Route: 022
  3. ASPIRIN [Concomitant]
     Active Substance: ASPIRIN
     Indication: Acute myocardial infarction
  4. TICAGRELOR [Concomitant]
     Active Substance: TICAGRELOR
     Indication: Acute myocardial infarction
  5. HEPARIN [Concomitant]
     Active Substance: HEPARIN SODIUM
     Indication: Acute myocardial infarction
  6. EPTIFIBATIDE [Suspect]
     Active Substance: EPTIFIBATIDE
     Indication: Acute myocardial infarction
     Dosage: BOLUS

REACTIONS (1)
  - Ventricular fibrillation [Recovered/Resolved]
